FAERS Safety Report 10236926 (Version 3)
Quarter: 2014Q2

REPORT INFORMATION
  Report Type: Report from Study
  Country: US (occurrence: US)
  Receive Date: 20140613
  Receipt Date: 20140625
  Transmission Date: 20141212
  Serious: Yes (Hospitalization)
  Sender: FDA-Public Use
  Company Number: US-ACTELION-A-US2013-84632

PATIENT
  Age: 2 Year
  Sex: Female

DRUGS (3)
  1. TRACLEER [Suspect]
     Indication: PULMONARY HYPERTENSION
     Dosage: UNK
     Route: 048
     Dates: start: 201301
  2. TRACLEER [Suspect]
     Dosage: UNK
     Route: 048
  3. LASIX [Concomitant]

REACTIONS (4)
  - Otitis media [Recovering/Resolving]
  - Tonsillectomy [Recovered/Resolved]
  - Ear tube removal [Recovered/Resolved]
  - Ear tube insertion [Recovered/Resolved]
